FAERS Safety Report 5321063-5 (Version None)
Quarter: 2007Q2

REPORT INFORMATION
  Report Type: 
  Country: None (occurrence: None)
  Receive Date: 20070504
  Receipt Date: 20070420
  Transmission Date: 20071010
  Serious: Yes (Hospitalization)
  Sender: FDA-Public Use
  Company Number: 2007S1002860

PATIENT
  Age: 69 Year
  Sex: Female

DRUGS (8)
  1. NITROFURANTOIN MONOHYDRATE/MACROCRYSTALS [Suspect]
     Indication: CYSTITIS
     Dosage: SEE IMAGE
     Route: 048
     Dates: start: 20061116, end: 20061122
  2. NITROFURANTOIN MONOHYDRATE/MACROCRYSTALS [Suspect]
     Indication: CYSTITIS
     Dosage: SEE IMAGE
     Route: 048
     Dates: start: 20061130, end: 20061205
  3. NITROFURANTOIN MONOHYDRATE/MACROCRYSTALS [Suspect]
     Indication: CYSTITIS
     Dosage: SEE IMAGE
     Route: 048
     Dates: start: 20070206, end: 20070211
  4. PROTONIX [Suspect]
     Dosage: ORAL
     Route: 048
     Dates: start: 20061210, end: 20070118
  5. PROTONIX [Suspect]
     Dosage: ORAL
     Route: 048
     Dates: end: 20070403
  6. LEVOTHYROXINE SODIUM [Concomitant]
  7. ALENDRONATE SODIUM [Concomitant]
  8. TRIAMTERENE AND HYDROCHLOROTHIAZIDE [Concomitant]

REACTIONS (15)
  - BACK INJURY [None]
  - BACK PAIN [None]
  - CHILLS [None]
  - COUGH [None]
  - DEHYDRATION [None]
  - DRUG INEFFECTIVE [None]
  - ERYTHEMA [None]
  - EYE SWELLING [None]
  - FATIGUE [None]
  - HEAD INJURY [None]
  - HYPOTENSION [None]
  - PRURITUS [None]
  - RASH GENERALISED [None]
  - SWELLING FACE [None]
  - SYNCOPE [None]
